FAERS Safety Report 22641631 (Version 18)
Quarter: 2025Q3

REPORT INFORMATION
  Report Type: Spontaneous
  Country: IN (occurrence: IN)
  Receive Date: 20230626
  Receipt Date: 20250903
  Transmission Date: 20251020
  Serious: Yes (Other)
  Sender: PFIZER
  Company Number: IN-PFIZER INC-202101177889

PATIENT
  Age: 44 Year
  Sex: Female

DRUGS (3)
  1. PALBOCICLIB [Suspect]
     Active Substance: PALBOCICLIB
     Indication: Breast cancer female
     Route: 048
     Dates: start: 20171018
  2. FEMARA [Concomitant]
     Active Substance: LETROZOLE
     Dosage: 2.5 MG, 1X/DAY FOR THREE MONTHS
  3. CALCIUM\CHOLECALCIFEROL [Concomitant]
     Active Substance: CALCIUM\CHOLECALCIFEROL
     Dosage: 500, 1X/DAY FOR 1 MONTH

REACTIONS (12)
  - Breast cancer female [Unknown]
  - Malignant neoplasm progression [Unknown]
  - Nodule [Unknown]
  - Blood pressure increased [Unknown]
  - Thyroid function test abnormal [Unknown]
  - Lipids abnormal [Unknown]
  - Respiratory rate increased [Unknown]
  - Weight decreased [Unknown]
  - Body mass index increased [Unknown]
  - Hepatic steatosis [Unknown]
  - Blood pressure diastolic increased [Unknown]
  - Arthralgia [Unknown]

NARRATIVE: CASE EVENT DATE: 20230321
